FAERS Safety Report 26001679 (Version 4)
Quarter: 2025Q4

REPORT INFORMATION
  Report Type: Spontaneous
  Country: JP (occurrence: JP)
  Receive Date: 20251105
  Receipt Date: 20251224
  Transmission Date: 20260118
  Serious: Yes (Life-Threatening, Hospitalization, Disabling, Other)
  Sender: NOVO NORDISK
  Company Number: JP-NOVOPROD-1551723

PATIENT
  Age: 11 Year
  Sex: Female
  Weight: 26.6 kg

DRUGS (2)
  1. SOGROYA [Suspect]
     Active Substance: SOMAPACITAN-BECO
     Indication: Growth hormone deficiency
     Dosage: 4.8 MG, QW
     Route: 058
     Dates: start: 20250108, end: 20250212
  2. MINIRINMELT OD [Concomitant]
     Indication: Diabetes insipidus
     Dosage: 240 ?G, BID
     Route: 048
     Dates: start: 20230106

REACTIONS (4)
  - Germ cell cancer [Recovering/Resolving]
  - Condition aggravated [Recovering/Resolving]
  - Optic atrophy [Not Recovered/Not Resolved]
  - Pituitary tumour benign [Unknown]

NARRATIVE: CASE EVENT DATE: 20250217
